FAERS Safety Report 14431766 (Version 1)
Quarter: 2018Q1

REPORT INFORMATION
  Report Type: Spontaneous
  Country: ZA (occurrence: ZA)
  Receive Date: 20180124
  Receipt Date: 20180124
  Transmission Date: 20180509
  Serious: Yes (Hospitalization)
  Sender: FDA-Public Use
  Company Number: ZA-MYLANLABS-2018M1003671

PATIENT
  Age: 70 Year
  Sex: Female

DRUGS (14)
  1. SALAZOPYRIN [Concomitant]
     Active Substance: SULFASALAZINE
     Indication: GASTROINTESTINAL DISORDER
     Dosage: 500 MG, UNK
     Route: 048
  2. LOXIFLAM [Concomitant]
     Indication: PAIN
     Dosage: 15 MG, UNK
     Route: 048
  3. CAMCOLIT [Concomitant]
     Active Substance: LITHIUM CARBONATE
     Indication: BIPOLAR DISORDER
     Dosage: 400 MG, UNK
     Route: 048
  4. CELEBREX [Concomitant]
     Active Substance: CELECOXIB
     Indication: PAIN
     Dosage: 200 MG, UNK
     Dates: start: 201712
  5. BE-TABS FOLIC ACID [Concomitant]
     Active Substance: FOLIC ACID
     Indication: FOLATE DEFICIENCY
     Dosage: 5 MG, UNK
     Route: 048
  6. ZOPIVANE [Concomitant]
     Active Substance: ZOPICLONE
     Indication: SLEEP DISORDER
     Dosage: 7.5 MG, UNK
     Route: 048
  7. LYRICA [Concomitant]
     Active Substance: PREGABALIN
     Indication: EPILEPSY
     Dosage: 150 MG, UNK
     Route: 048
     Dates: start: 201711
  8. MYLAN OXYBUTYNIN 5 MG [Suspect]
     Active Substance: OXYBUTYNIN
     Indication: BLADDER DISORDER
     Dosage: 5 MG, UNK
     Route: 048
  9. ULTRACET [Concomitant]
     Active Substance: ACETAMINOPHEN\TRAMADOL HYDROCHLORIDE
     Indication: PAIN
     Dosage: 37.5/325MG
     Route: 048
  10. URBANOL [Concomitant]
     Active Substance: CLOBAZAM
     Indication: ANXIETY
     Dosage: 100 MG, UNK
     Route: 048
  11. EPLEPTIN [Concomitant]
     Active Substance: GABAPENTIN
     Indication: EPILEPSY
     Dosage: 400 MG, UNK
     Route: 048
  12. BE-TABS PREDNISONE [Concomitant]
     Active Substance: PREDNISONE
     Dosage: 5 MG, UNK
     Route: 048
     Dates: start: 201711
  13. EPITEC [Concomitant]
     Active Substance: LAMOTRIGINE
     Indication: EPILEPSY
     Dosage: 100 MG, UNK
     Route: 048
  14. ELTROXIN [Concomitant]
     Active Substance: LEVOTHYROXINE
     Indication: HYPOTHYROIDISM
     Dosage: 100 ?G, UNK
     Route: 048

REACTIONS (1)
  - Bladder disorder [Unknown]
